FAERS Safety Report 6179256-3 (Version None)
Quarter: 2009Q2

REPORT INFORMATION
  Report Type: 
  Country: None (occurrence: None)
  Receive Date: 20090505
  Receipt Date: 20090312
  Transmission Date: 20091009
  Serious: No
  Sender: FDA-Public Use
  Company Number: US-BAYER-200915790NA

PATIENT
  Sex: Female

DRUGS (1)
  1. MIRENA [Suspect]
     Indication: DRUG USE FOR UNKNOWN INDICATION
     Dosage: CONTINUOUS

REACTIONS (4)
  - ABDOMINAL PAIN UPPER [None]
  - ANGER [None]
  - FEELING ABNORMAL [None]
  - MENSTRUATION DELAYED [None]
